FAERS Safety Report 5680066-1 (Version None)
Quarter: 2008Q1

REPORT INFORMATION
  Report Type: 
  Country: None (occurrence: None)
  Receive Date: 20080326
  Receipt Date: 20080326
  Transmission Date: 20080703
  Serious: Yes (Disabling)
  Sender: FDA-Public Use
  Company Number: None

PATIENT
  Age: 85 Year
  Sex: Female

DRUGS (1)
  1. HEPARIN [Suspect]
     Indication: DIAGNOSTIC PROCEDURE
     Dosage: 3000 UNIT X1 IV BOLUS
     Route: 040
     Dates: start: 20080320, end: 20080320

REACTIONS (2)
  - PRURITUS [None]
  - THROMBOSIS [None]
